FAERS Safety Report 7211748-8 (Version None)
Quarter: 2011Q1

REPORT INFORMATION
  Report Type: 
  Country: None (occurrence: None)
  Receive Date: 20110105
  Receipt Date: 20101230
  Transmission Date: 20110831
  Serious: Yes (Other)
  Sender: FDA-Public Use
  Company Number: BR-PFIZER INC-2010131889

PATIENT
  Age: 55 Year
  Sex: Female
  Weight: 52.7 kg

DRUGS (11)
  1. CARVEDILOL [Concomitant]
     Indication: CARDIAC DISORDER
     Dosage: 12.5 MG, 1X/DAY
     Dates: start: 20050101
  2. CHAMPIX [Suspect]
     Indication: TOBACCO USER
     Dosage: UNK
     Route: 048
     Dates: start: 20101001
  3. ASPIRIN [Concomitant]
     Indication: CARDIOVASCULAR INSUFFICIENCY
     Dosage: 100 MG, 1X/DAY
     Dates: start: 20040101
  4. ENALAPRIL [Concomitant]
     Indication: CARDIAC DISORDER
     Dosage: 10 MG, 1X/DAY
     Dates: start: 20050101
  5. MULTIVITAMIN [Concomitant]
     Dosage: UNK
     Dates: start: 20100901
  6. STRONTIUM RANELATE [Concomitant]
     Indication: OSTEOPENIA
     Dosage: UNK
     Dates: start: 20100901
  7. OLCADIL [Concomitant]
     Indication: SEDATIVE THERAPY
     Dosage: 2 MG, UNK
     Dates: start: 20000101
  8. SYNTHROID [Concomitant]
     Indication: THYROID OPERATION
     Dosage: 88 MG, UNK
     Dates: start: 20000101
  9. VYTORIN [Concomitant]
     Indication: CARDIAC DISORDER
     Dosage: EZETIMIBE 10MG / SIMVASTATIN 20MG, ONCE DAILY
     Dates: start: 20100801
  10. GABALON [Concomitant]
  11. CHAMPIX [Suspect]
     Indication: NICOTINE DEPENDENCE
     Dosage: 1 MG, 1X/DAY
     Route: 048
     Dates: end: 20101225

REACTIONS (7)
  - ARTERIAL OCCLUSIVE DISEASE [None]
  - DEPRESSION [None]
  - ANTISOCIAL BEHAVIOUR [None]
  - MOOD SWINGS [None]
  - CRYING [None]
  - AGGRESSION [None]
  - ANXIETY [None]
